FAERS Safety Report 14072329 (Version 2)
Quarter: 2024Q3

REPORT INFORMATION
  Report Type: Other
  Country: CA (occurrence: CA)
  Receive Date: 20171011
  Receipt Date: 20240902
  Transmission Date: 20241016
  Serious: Yes (Other)
  Sender: APOTEX
  Company Number: CA-APOTEX-2017AP019339

PATIENT
  Age: 45 Year
  Sex: Female

DRUGS (5)
  1. PREDNISONE [Suspect]
     Active Substance: PREDNISONE
     Indication: Product used for unknown indication
     Dosage: 5 MILLIGRAM, QD
     Route: 048
  2. VENTOLIN [Suspect]
     Active Substance: ALBUTEROL SULFATE
     Indication: Product used for unknown indication
     Dosage: UNK
     Route: 065
  3. NUCALA [Suspect]
     Active Substance: MEPOLIZUMAB
     Indication: Asthma
     Dosage: 100 MILLIGRAM
     Route: 058
  4. ADVAIR HFA [Suspect]
     Active Substance: FLUTICASONE PROPIONATE\SALMETEROL XINAFOATE
     Indication: Product used for unknown indication
     Dosage: 2 DOSAGE FORM, Q.12H
     Route: 065
  5. OMNARIS [Suspect]
     Active Substance: CICLESONIDE
     Indication: Product used for unknown indication
     Dosage: UNK, Q.12H
     Route: 065

REACTIONS (16)
  - Eosinophilic granulomatosis with polyangiitis [Unknown]
  - Abortion spontaneous [Unknown]
  - Deep vein thrombosis [Unknown]
  - Exposure during pregnancy [Unknown]
  - Livedo reticularis [Unknown]
  - Lung infiltration [Unknown]
  - Mouth ulceration [Unknown]
  - Pericardial drainage [Unknown]
  - Pericarditis [Unknown]
  - Peripheral sensory neuropathy [Unknown]
  - Pleurisy [Unknown]
  - Pulmonary mass [Unknown]
  - Skin mass [Unknown]
  - Adenomyosis [Unknown]
  - Labyrinthitis [Unknown]
  - Sinusitis [Unknown]
